FAERS Safety Report 8033732-7 (Version None)
Quarter: 2012Q1

REPORT INFORMATION
  Report Type: 
  Country: None (occurrence: None)
  Receive Date: 20120110
  Receipt Date: 20120102
  Transmission Date: 20120608
  Serious: Yes (Other)
  Sender: FDA-Public Use
  Company Number: GB-GLAXOSMITHKLINE-B0753494A

PATIENT
  Age: 44 Year
  Sex: Female

DRUGS (1)
  1. FLUTICASONE PROPIONATE [Suspect]
     Indication: NASAL DISORDER
     Dosage: 24IUAX PER DAY
     Route: 045
     Dates: start: 20110813, end: 20110820

REACTIONS (2)
  - VOMITING [None]
  - DIARRHOEA [None]
